FAERS Safety Report 10395573 (Version 1)
Quarter: 2014Q3

REPORT INFORMATION
  Report Type: Spontaneous
  Country: US (occurrence: None)
  Receive Date: 20140815
  Receipt Date: 20140815
  Transmission Date: 20150326
  Serious: No
  Sender: FDA-Public Use
  Company Number: None

PATIENT
  Age: 87 Year
  Sex: Male
  Weight: 87.3 kg

DRUGS (17)
  1. ENOXAPARIN [Suspect]
     Active Substance: ENOXAPARIN
     Indication: DEEP VEIN THROMBOSIS
     Dosage: 90 MG?BID?SQ
     Route: 058
  2. ALBUTEROL 0.083% SOLN,INHL [Concomitant]
  3. CHLORHEXIDINE GLUCONATE RINSE [Concomitant]
  4. PIPERACILLIN/TAZOBACTAM [Suspect]
     Active Substance: PIPERACILLIN SODIUM\TAZOBACTAM SODIUM
     Route: 042
     Dates: start: 20140708, end: 20140714
  5. BISACODYL SUPP [Concomitant]
  6. DOCUSATE UD CUP SYRUP [Concomitant]
  7. METOCLOPRAMIDE. [Concomitant]
     Active Substance: METOCLOPRAMIDE
  8. PANTOPRAZOLE [Concomitant]
     Active Substance: PANTOPRAZOLE SODIUM
  9. CALCIUM CARBONATE SUSP [Concomitant]
  10. LEVOTHYROXINE [Concomitant]
     Active Substance: LEVOTHYROXINE
  11. METOPROLOL [Concomitant]
     Active Substance: METOPROLOL
  12. QUETIAPINE [Concomitant]
     Active Substance: QUETIAPINE
  13. ENOXAPARIN [Concomitant]
     Active Substance: ENOXAPARIN
  14. HYDRALAZINE [Concomitant]
     Active Substance: HYDRALAZINE HYDROCHLORIDE
  15. OIL RETENTION ENEMA [Concomitant]
  16. ACETAMINOPHEN. [Concomitant]
     Active Substance: ACETAMINOPHEN
  17. ALBUTEROL/IPRATROPIUM SOLN,INHL [Concomitant]

REACTIONS (2)
  - Respiratory failure [None]
  - Thrombocytopenia [None]

NARRATIVE: CASE EVENT DATE: 20140712
